FAERS Safety Report 6162351-2 (Version None)
Quarter: 2009Q2

REPORT INFORMATION
  Report Type: 
  Country: None (occurrence: None)
  Receive Date: 20090421
  Receipt Date: 20090321
  Transmission Date: 20091009
  Serious: No
  Sender: FDA-Public Use
  Company Number: US-BAYER-200916554NA

PATIENT
  Age: 79 Year
  Sex: Female

DRUGS (2)
  1. CIPROFLOXACIN HCL [Suspect]
     Indication: INFECTION
     Dosage: UNIT DOSE: 500 MG
     Dates: start: 20090317, end: 20090321
  2. CIPROFLOXACIN HCL [Suspect]
     Route: 042
     Dates: start: 20090314

REACTIONS (3)
  - DIZZINESS [None]
  - FLATULENCE [None]
  - VAGINAL INFECTION [None]
